FAERS Safety Report 25037682 (Version 2)
Quarter: 2025Q1

REPORT INFORMATION
  Report Type: Spontaneous
  Country: US (occurrence: US)
  Receive Date: 20250304
  Receipt Date: 20250321
  Transmission Date: 20250409
  Serious: No
  Sender: ELI LILLY AND COMPANY
  Company Number: US-ELI_LILLY_AND_COMPANY-US202503002065

PATIENT
  Age: 76 Year

DRUGS (1)
  1. TRULICITY [Suspect]
     Active Substance: DULAGLUTIDE
     Indication: Type 2 diabetes mellitus
     Route: 058
     Dates: start: 202411

REACTIONS (4)
  - Extra dose administered [Unknown]
  - Nasopharyngitis [Recovering/Resolving]
  - Cough [Recovering/Resolving]
  - Seasonal allergy [Not Recovered/Not Resolved]

NARRATIVE: CASE EVENT DATE: 20250302
